FAERS Safety Report 9004938 (Version 1)
Quarter: 2013Q1

REPORT INFORMATION
  Report Type: Spontaneous
  Country: KR (occurrence: KR)
  Receive Date: 20130109
  Receipt Date: 20130109
  Transmission Date: 20140127
  Serious: Yes (Death, Hospitalization)
  Sender: FDA-Public Use
  Company Number: KR-BAYER-2013-001700

PATIENT
  Age: 54 Year
  Sex: Male

DRUGS (2)
  1. NEXAVAR [Suspect]
     Indication: HEPATOCELLULAR CARCINOMA
     Dosage: 400 MG, BID
  2. NEXAVAR [Suspect]
     Indication: METASTASES TO LUNG

REACTIONS (5)
  - Small intestinal perforation [None]
  - Pulmonary sepsis [Fatal]
  - Palmar-plantar erythrodysaesthesia syndrome [None]
  - Fatigue [None]
  - Hypertension [None]
